FAERS Safety Report 10033262 (Version 2)
Quarter: 2014Q2

REPORT INFORMATION
  Report Type: Spontaneous
  Country: US (occurrence: US)
  Receive Date: 20140324
  Receipt Date: 20140605
  Transmission Date: 20141212
  Serious: No
  Sender: FDA-Public Use
  Company Number: US-GILEAD-2014-0097441

PATIENT
  Sex: Female

DRUGS (4)
  1. LETAIRIS [Suspect]
     Indication: PULMONARY ARTERIAL HYPERTENSION
     Dosage: 10 MG, QD
     Route: 048
     Dates: start: 20120612
  2. LETAIRIS [Suspect]
     Indication: SCLERODERMA
  3. REVATIO [Concomitant]
  4. SPIRIVA [Suspect]

REACTIONS (1)
  - Cough [Unknown]
